FAERS Safety Report 13028545 (Version 1)
Quarter: 2016Q4

REPORT INFORMATION
  Report Type: Spontaneous
  Country: US (occurrence: US)
  Receive Date: 20161214
  Receipt Date: 20161214
  Transmission Date: 20170207
  Serious: No
  Sender: FDA-Public Use
  Company Number: US-APOTEX-2016AP009486

PATIENT
  Sex: Female

DRUGS (2)
  1. FENTANYL TRANSDERMAL SYSTEM [Suspect]
     Active Substance: FENTANYL
     Indication: MYELOPATHY
     Dosage: 100 ?G, UNK
     Route: 062
     Dates: start: 20160621
  2. FENTANYL TRANSDERMAL SYSTEM [Suspect]
     Active Substance: FENTANYL
     Indication: PAIN

REACTIONS (6)
  - Product leakage [Not Recovered/Not Resolved]
  - Blister [Not Recovered/Not Resolved]
  - Drug ineffective [Not Recovered/Not Resolved]
  - Application site burn [Not Recovered/Not Resolved]
  - Product substitution issue [Unknown]
  - Rash [Not Recovered/Not Resolved]
